FAERS Safety Report 5220987-7 (Version None)
Quarter: 2007Q1

REPORT INFORMATION
  Report Type: 
  Country: None (occurrence: None)
  Receive Date: 20070124
  Receipt Date: 20061101
  Transmission Date: 20070707
  Serious: Yes (Hospitalization)
  Sender: FDA-Public Use
  Company Number: DL2006462

PATIENT
  Age: 20 Year
  Sex: Female

DRUGS (2)
  1. MIFEPRISTONE TABLETS 200 MG DANCO LABS [Suspect]
     Indication: ABORTION INDUCED
     Dosage: 200 MG ORAL
     Route: 048
     Dates: start: 20060314
  2. MISOPROSTOL [Suspect]
     Dosage: 800 MCG VAGINAL
     Route: 067
     Dates: start: 20060316

REACTIONS (1)
  - MENORRHAGIA [None]
